FAERS Safety Report 24588216 (Version 1)
Quarter: 2024Q4

REPORT INFORMATION
  Report Type: Spontaneous
  Country: US (occurrence: None)
  Receive Date: 20241106
  Receipt Date: 20241106
  Transmission Date: 20250115
  Serious: Yes (Death)
  Sender: Public
  Company Number: None

PATIENT
  Age: 81 Year
  Sex: Female
  Weight: 56.5 kg

DRUGS (1)
  1. POMALYST [Suspect]
     Active Substance: POMALIDOMIDE
     Indication: Plasma cell myeloma
     Dosage: OTHER FREQUENCY : FOR21DAYS,THEN7DAYSOFF;?
     Route: 048
     Dates: start: 20231113, end: 20241105

REACTIONS (2)
  - Neoplasm malignant [None]
  - Disease progression [None]

NARRATIVE: CASE EVENT DATE: 20241105
